FAERS Safety Report 5914368-8 (Version None)
Quarter: 2008Q4

REPORT INFORMATION
  Report Type: 
  Country: None (occurrence: None)
  Receive Date: 20081009
  Receipt Date: 20080929
  Transmission Date: 20090506
  Serious: Yes (Other)
  Sender: FDA-Public Use
  Company Number: GB-PFIZER INC-2008083155

PATIENT
  Age: 55 Year
  Sex: Female

DRUGS (8)
  1. CHANTIX [Suspect]
     Route: 048
     Dates: start: 20080817, end: 20080826
  2. CALCICHEW-D3 [Concomitant]
  3. FOLIC ACID [Concomitant]
  4. LANSOPRAZOLE [Concomitant]
  5. LISINOPRIL [Concomitant]
  6. METHOTREXATE SODIUM [Concomitant]
  7. OLMESARTAN MEDOXOMIL [Concomitant]
  8. TRAMADOL HCL [Concomitant]

REACTIONS (1)
  - SOCIAL AVOIDANT BEHAVIOUR [None]
